FAERS Safety Report 8458285 (Version 2)
Quarter: 2013Q2

REPORT INFORMATION
  Report Type: Spontaneous
  Country: US (occurrence: None)
  Receive Date: 20120227
  Receipt Date: 20120525
  Transmission Date: 20140414
  Serious: Yes (Hospitalization)
  Sender: FDA-Public Use
  Company Number: 339175

PATIENT
  Age: 55 Year
  Sex: Male
  Weight: 78.5 kg

DRUGS (2)
  1. VICTOZA [Suspect]
     Dosage: NOT A SUSPECT MEDICATION NOT A SUSPECT PRODUCT, SUBCUTANEOUS
     Route: 058
  2. ONGLYZA [Suspect]
     Indication: PRODUCT USED FOR UNKNOWN INDICATION
     Dosage: UNKNOWN, ORAL
     Route: 048

REACTIONS (1)
  - PANCREATITIS [None]
